FAERS Safety Report 9899124 (Version 2)
Quarter: 2015Q3

REPORT INFORMATION
  Report Type: Spontaneous
  Country: US (occurrence: US)
  Receive Date: 20140214
  Receipt Date: 20150810
  Transmission Date: 20151125
  Serious: No
  Sender: FDA-Public Use
  Company Number: US-GILEAD-2011-0045909

PATIENT
  Age: 76 Year
  Sex: Female

DRUGS (2)
  1. LETAIRIS [Suspect]
     Active Substance: AMBRISENTAN
     Indication: PRODUCT USED FOR UNKNOWN INDICATION
     Dosage: 10 MG, UNK
     Route: 048
     Dates: start: 20070916
  2. VENTAVIS [Concomitant]
     Active Substance: ILOPROST

REACTIONS (4)
  - Chromaturia [Unknown]
  - Decreased appetite [Unknown]
  - Pruritus [Unknown]
  - Fatigue [Unknown]
